FAERS Safety Report 18212976 (Version 1)
Quarter: 2020Q3

REPORT INFORMATION
  Report Type: Spontaneous
  Country: BE (occurrence: BE)
  Receive Date: 20200831
  Receipt Date: 20200831
  Transmission Date: 20201103
  Serious: Yes (Other)
  Sender: FDA-Public Use
  Company Number: BE-TEVA-2020-BE-1817962

PATIENT
  Age: 35 Year
  Sex: Male

DRUGS (10)
  1. AZATHIOPRINE. [Suspect]
     Active Substance: AZATHIOPRINE
     Indication: ACANTHAMOEBA KERATITIS
     Route: 065
  2. NEPAFENAC [Suspect]
     Active Substance: NEPAFENAC
     Indication: ACANTHAMOEBA KERATITIS
     Route: 061
  3. IBUPROFEN. [Suspect]
     Active Substance: IBUPROFEN
     Indication: ACANTHAMOEBA KERATITIS
     Dosage: THREE TIMES A DAY
     Route: 048
  4. ITRACONAZOLE. [Concomitant]
     Active Substance: ITRACONAZOLE
     Indication: EYE INFECTION FUNGAL
     Route: 048
  5. POLYHEXAMETHYLENE BIGUANIDE [Concomitant]
     Active Substance: POLIHEXANIDE
     Indication: ACANTHAMOEBA KERATITIS
     Dosage: SIX TIMES A DAY
     Route: 065
  6. AMPHOTERICIN B. [Concomitant]
     Active Substance: AMPHOTERICIN B
     Indication: EYE INFECTION FUNGAL
     Dosage: SIX TIMES A DAY
     Route: 065
  7. METHYLPREDNISOLONE. [Suspect]
     Active Substance: METHYLPREDNISOLONE
     Indication: ACANTHAMOEBA KERATITIS
     Route: 048
  8. CHLORHEXIDINE [Concomitant]
     Active Substance: CHLORHEXIDINE
     Indication: ACANTHAMOEBA KERATITIS
     Dosage: SIX TIMES A DAY
     Route: 065
  9. SOLU?MEDROL [Suspect]
     Active Substance: METHYLPREDNISOLONE SODIUM SUCCINATE
     Indication: ACANTHAMOEBA KERATITIS
     Route: 042
  10. DESOMEDINE [Concomitant]
     Active Substance: HEXAMIDINE DIISETHIONATE
     Indication: ACANTHAMOEBA KERATITIS
     Route: 065

REACTIONS (7)
  - Drug ineffective [Unknown]
  - Anaemia [Unknown]
  - Myopathy [Unknown]
  - Osteonecrosis [Unknown]
  - Muscle atrophy [Unknown]
  - Bronchopulmonary aspergillosis [Unknown]
  - Blood lactate dehydrogenase increased [Unknown]
